FAERS Safety Report 6724063-3 (Version None)
Quarter: 2010Q2

REPORT INFORMATION
  Report Type: 
  Country: None (occurrence: None)
  Receive Date: 20100513
  Receipt Date: 20100504
  Transmission Date: 20101027
  Serious: Yes (Hospitalization)
  Sender: FDA-Public Use
  Company Number: B0652497A

PATIENT
  Sex: Female

DRUGS (3)
  1. AMOXICILLIN AND CLAVULANATE POTASSIUM [Suspect]
     Route: 048
     Dates: start: 20090914, end: 20090915
  2. PREDNISOLON [Concomitant]
  3. COMBIVENT [Concomitant]

REACTIONS (2)
  - ASTHMA [None]
  - PRURITUS [None]
